FAERS Safety Report 19046911 (Version 1)
Quarter: 2021Q1

REPORT INFORMATION
  Report Type: Spontaneous
  Country: US (occurrence: US)
  Receive Date: 20210323
  Receipt Date: 20210323
  Transmission Date: 20210420
  Serious: No
  Sender: FDA-Public Use
  Company Number: US-SA-2021SA095083

PATIENT
  Age: 41 Year
  Sex: Female

DRUGS (2)
  1. DUPIXENT [Suspect]
     Active Substance: DUPILUMAB
     Indication: DERMATITIS ATOPIC
     Dosage: UNK
     Route: 058
     Dates: start: 202011
  2. DUPIXENT [Suspect]
     Active Substance: DUPILUMAB

REACTIONS (9)
  - Eczema [Unknown]
  - Dermatitis atopic [Unknown]
  - Injection site pain [Unknown]
  - Pruritus [Unknown]
  - Dry eye [Unknown]
  - Skin exfoliation [Unknown]
  - Dry skin [Unknown]
  - Eye pruritus [Unknown]
  - Skin weeping [Unknown]

NARRATIVE: CASE EVENT DATE: 202103
